FAERS Safety Report 6286120-8 (Version None)
Quarter: 2009Q3

REPORT INFORMATION
  Report Type: 
  Country: None (occurrence: None)
  Receive Date: 20090728
  Receipt Date: 20090721
  Transmission Date: 20100115
  Serious: Yes (Death)
  Sender: FDA-Public Use
  Company Number: US-ROCHE-638462

PATIENT
  Sex: Female
  Weight: 108.9 kg

DRUGS (4)
  1. PEG-INTERFERON ALFA 2A (RO 25-8310) [Suspect]
     Route: 058
     Dates: start: 20090202
  2. RIBAVIRIN [Suspect]
     Dosage: DOSAGE FORM: PILLS LAST DOSE PRIOR TO SAE WAS 11 MAY 2009.
     Route: 048
     Dates: start: 20090202
  3. PROCRIT [Concomitant]
     Dosage: TDD: 40000 UNITS
     Dates: start: 20090316
  4. NEUPOGEN [Concomitant]
     Dates: start: 20090316

REACTIONS (1)
  - HAEMORRHAGE INTRACRANIAL [None]
